FAERS Safety Report 16377413 (Version 1)
Quarter: 2019Q2

REPORT INFORMATION
  Report Type: Spontaneous
  Country: ES (occurrence: ES)
  Receive Date: 20190531
  Receipt Date: 20190531
  Transmission Date: 20190711
  Serious: Yes (Life-Threatening, Hospitalization)
  Sender: FDA-Public Use
  Company Number: ES-PFIZER INC-2019228954

PATIENT
  Age: 61 Year
  Sex: Male

DRUGS (6)
  1. VINCRISTINE SULFATE. [Suspect]
     Active Substance: VINCRISTINE SULFATE
     Indication: B-CELL LYMPHOMA
     Dosage: 0.74 MG, CYCLIC (6 CYCLES, IN CONTINUES PERFUSION, DAYS 2-4 OF THE CYCLE)
     Route: 041
     Dates: start: 20150709, end: 20151024
  2. DOXORUBICIN HCL [Suspect]
     Active Substance: DOXORUBICIN HYDROCHLORIDE
     Indication: B-CELL LYMPHOMA
     Dosage: 18.5 MG, CYCLIC (18.5 G IN CONTINUOUS PERFUSION, DAYS 2-4 OF THE CYCLE)
     Route: 041
     Dates: start: 20150709, end: 20151024
  3. RITUXIMAB. [Suspect]
     Active Substance: RITUXIMAB
     Indication: B-CELL LYMPHOMA
     Dosage: 693.75 MG, CYCLIC (6 CYCLES)
     Route: 042
     Dates: start: 20150708, end: 20151021
  4. METHOTREXATE SODIUM. [Suspect]
     Active Substance: METHOTREXATE SODIUM
     Indication: B-CELL LYMPHOMA
     Dosage: 9098.6 MG, SINGLE (TOTAL DOSAGE 9098.6 MG, IN TWO DOSE: 28NOV2015- 14DEC2015)
     Route: 042
     Dates: start: 20151128, end: 20151214
  5. ETOPOSIDE. [Suspect]
     Active Substance: ETOPOSIDE
     Indication: B-CELL LYMPHOMA
     Dosage: 92.5 MG, CYCLIC (6 CYCLES, IN CONTINUES PERFUSION, DAYS 2-4 OF THE CYCLE)
     Route: 041
     Dates: start: 20150709, end: 20151024
  6. CYCLOPHOSPHAMIDE. [Suspect]
     Active Substance: CYCLOPHOSPHAMIDE
     Indication: B-CELL LYMPHOMA
     Dosage: 1387.5 MG, CYCLIC (DAY 5 OF THE CYCLE)
     Route: 042
     Dates: start: 20150712, end: 20151025

REACTIONS (2)
  - Acute myeloid leukaemia [Recovered/Resolved with Sequelae]
  - Second primary malignancy [Recovered/Resolved with Sequelae]

NARRATIVE: CASE EVENT DATE: 20160508
